FAERS Safety Report 23105574 (Version 1)
Quarter: 2023Q4

REPORT INFORMATION
  Report Type: Spontaneous
  Country: US (occurrence: None)
  Receive Date: 20231023
  Receipt Date: 20231023
  Transmission Date: 20240110
  Serious: Yes (Hospitalization)
  Sender: FDA-Public Use
  Company Number: None

PATIENT
  Age: 62 Year
  Sex: Female

DRUGS (1)
  1. ORLISTAT [Suspect]
     Active Substance: ORLISTAT
     Dosage: FREQUENCY : 3 TIMES A DAY;?
     Route: 048
     Dates: start: 20221130, end: 20230125

REACTIONS (6)
  - Abdominal distension [None]
  - Constipation [None]
  - Diarrhoea [None]
  - Suicidal ideation [None]
  - Feeling of despair [None]
  - Depression [None]

NARRATIVE: CASE EVENT DATE: 20230209
